FAERS Safety Report 7768475-8 (Version None)
Quarter: 2011Q3

REPORT INFORMATION
  Report Type: 
  Country: None (occurrence: None)
  Receive Date: 20110922
  Receipt Date: 20100106
  Transmission Date: 20111222
  Serious: No
  Sender: FDA-Public Use
  Company Number: US-ASTRAZENECA-2007UW01938

PATIENT
  Age: 17835 Day
  Sex: Female
  Weight: 149.7 kg

DRUGS (66)
  1. SEROQUEL [Suspect]
     Route: 048
     Dates: start: 20050418
  2. SEROQUEL [Suspect]
     Route: 048
  3. BUSPAR [Concomitant]
     Route: 048
     Dates: start: 20031118
  4. DEPAKOTE [Concomitant]
     Dates: start: 20031112
  5. TRAZODONE HYDROCHLORIDE [Concomitant]
     Indication: INSOMNIA
     Dates: start: 20031007
  6. VESICARE [Concomitant]
  7. SEROQUEL [Suspect]
     Dosage: 25-300 MG
     Route: 048
     Dates: start: 20031007
  8. SEROQUEL [Suspect]
     Route: 048
     Dates: start: 20040729
  9. SEROQUEL [Suspect]
     Route: 048
     Dates: start: 20040926
  10. BUSPAR [Concomitant]
     Route: 048
     Dates: start: 20031118
  11. METFORMIN [Concomitant]
  12. ALBUTEROL [Concomitant]
     Dosage: AS REQUIRED
  13. LOVASTATIN [Concomitant]
  14. SEROQUEL [Suspect]
     Route: 048
     Dates: start: 20031028
  15. SEROQUEL [Suspect]
     Route: 048
     Dates: start: 20031028
  16. SEROQUEL [Suspect]
     Route: 048
     Dates: start: 20031118
  17. SEROQUEL [Suspect]
     Route: 048
     Dates: start: 20040510
  18. SEROQUEL [Suspect]
     Route: 048
     Dates: start: 20051202
  19. LEXAPRO [Concomitant]
     Indication: DEPRESSION
     Dates: start: 20031007
  20. LEXAPRO [Concomitant]
     Dates: start: 20040614
  21. DEPAKOTE [Concomitant]
     Dates: start: 20061130
  22. SEROQUEL [Suspect]
     Indication: BIPOLAR DISORDER
     Route: 048
     Dates: start: 20021031
  23. SEROQUEL [Suspect]
     Route: 048
     Dates: start: 20040510
  24. SEROQUEL [Suspect]
     Route: 048
     Dates: start: 20051202
  25. SEROQUEL [Suspect]
     Route: 048
     Dates: start: 20051228
  26. SEROQUEL [Suspect]
     Route: 048
     Dates: start: 20051228
  27. SEROQUEL [Suspect]
     Route: 048
  28. BUSPAR [Concomitant]
     Route: 048
     Dates: start: 20041013
  29. DYNACIRC CR [Concomitant]
  30. PRILOSEC [Concomitant]
  31. MAXZIDE [Concomitant]
     Dosage: EVERY DAY
  32. SEROQUEL [Suspect]
     Indication: ANXIETY
     Route: 048
     Dates: start: 20021031
  33. SEROQUEL [Suspect]
     Indication: PANIC ATTACK
     Route: 048
     Dates: start: 20021031
  34. SEROQUEL [Suspect]
     Dosage: 25-300 MG
     Route: 048
     Dates: start: 20031007
  35. SEROQUEL [Suspect]
     Route: 048
     Dates: start: 20040206
  36. SEROQUEL [Suspect]
     Route: 048
     Dates: start: 20040729
  37. SEROQUEL [Suspect]
     Route: 048
     Dates: start: 20040729
  38. SEROQUEL [Suspect]
     Route: 048
     Dates: start: 20050418
  39. SEROQUEL [Suspect]
     Route: 048
     Dates: start: 20051228
  40. LEXAPRO [Concomitant]
     Dates: start: 20061130
  41. FLONASE [Concomitant]
     Dosage: AS REQUIRED
  42. SEROQUEL [Suspect]
     Dosage: 25-300 MG
     Route: 048
     Dates: start: 20031007
  43. SEROQUEL [Suspect]
     Route: 048
     Dates: start: 20031028
  44. SEROQUEL [Suspect]
     Route: 048
     Dates: start: 20031118
  45. SEROQUEL [Suspect]
     Route: 048
     Dates: start: 20040206
  46. SEROQUEL [Suspect]
     Route: 048
     Dates: start: 20040510
  47. SEROQUEL [Suspect]
     Route: 048
     Dates: start: 20051202
  48. LEXAPRO [Concomitant]
     Dates: start: 20031118
  49. BUSPAR [Concomitant]
     Route: 048
     Dates: start: 20031028
  50. BUSPAR [Concomitant]
     Route: 048
     Dates: start: 20040903
  51. BUSPAR [Concomitant]
     Route: 048
     Dates: start: 20041013
  52. DEPAKOTE ER [Concomitant]
     Dates: start: 20031007
  53. TRAZODONE HYDROCHLORIDE [Concomitant]
     Dates: start: 20060606
  54. SEROQUEL [Suspect]
     Dosage: 25 - 200 MG
     Route: 048
     Dates: start: 20031001
  55. SEROQUEL [Suspect]
     Dosage: 25 - 200 MG
     Route: 048
     Dates: start: 20031001
  56. SEROQUEL [Suspect]
     Route: 048
     Dates: start: 20040926
  57. SEROQUEL [Suspect]
     Route: 048
     Dates: start: 20050418
  58. DEPAKOTE ER [Concomitant]
     Route: 048
     Dates: start: 20031007
  59. DEPAKOTE [Concomitant]
     Dates: start: 20031118
  60. SEROQUEL [Suspect]
     Dosage: 25 - 200 MG
     Route: 048
     Dates: start: 20031001
  61. SEROQUEL [Suspect]
     Route: 048
     Dates: start: 20031118
  62. SEROQUEL [Suspect]
     Route: 048
     Dates: start: 20040206
  63. SEROQUEL [Suspect]
     Route: 048
     Dates: start: 20040926
  64. SEROQUEL [Suspect]
     Route: 048
  65. LEXAPRO [Concomitant]
     Dates: start: 20031028
  66. ENALAPRIL MALEATE [Concomitant]
     Dates: start: 20061130

REACTIONS (13)
  - GASTROOESOPHAGEAL REFLUX DISEASE [None]
  - CONSTIPATION [None]
  - RESPIRATORY DISORDER [None]
  - TEMPOROMANDIBULAR JOINT SYNDROME [None]
  - MUSCULOSKELETAL PAIN [None]
  - HYPERLIPIDAEMIA [None]
  - BLOOD TRIGLYCERIDES INCREASED [None]
  - NAUSEA [None]
  - BLOOD CHOLESTEROL INCREASED [None]
  - CANDIDIASIS [None]
  - TYPE 2 DIABETES MELLITUS [None]
  - RHINITIS ALLERGIC [None]
  - ARTHRALGIA [None]
